FAERS Safety Report 9901888 (Version 1)
Quarter: 2014Q1

REPORT INFORMATION
  Report Type: Spontaneous
  Country: FR (occurrence: FR)
  Receive Date: 20140217
  Receipt Date: 20140217
  Transmission Date: 20141002
  Serious: Yes (Other)
  Sender: FDA-Public Use
  Company Number: FR-GLAXOSMITHKLINE-B0967527A

PATIENT
  Sex: Female
  Weight: 32 kg

DRUGS (3)
  1. LAMICTAL [Suspect]
     Indication: PETIT MAL EPILEPSY
     Dosage: 5MGKD PER DAY
     Route: 048
  2. DEPAKINE [Suspect]
     Indication: PETIT MAL EPILEPSY
     Route: 048
  3. URBANYL [Suspect]
     Indication: PETIT MAL EPILEPSY
     Route: 048

REACTIONS (3)
  - Delayed puberty [Not Recovered/Not Resolved]
  - Growth retardation [Not Recovered/Not Resolved]
  - Bone development abnormal [Not Recovered/Not Resolved]
